FAERS Safety Report 11086706 (Version 1)
Quarter: 2015Q2

REPORT INFORMATION
  Report Type: Spontaneous
  Country: US (occurrence: None)
  Receive Date: 20150501
  Receipt Date: 20150501
  Transmission Date: 20150821
  Serious: Yes (Other)
  Sender: FDA-Public Use
  Company Number: None

PATIENT
  Age: 43 Year
  Sex: Female

DRUGS (3)
  1. LISINOPRIL. [Suspect]
     Active Substance: LISINOPRIL
     Indication: DIABETES MELLITUS
     Dosage: 2.5
     Route: 048
     Dates: start: 20150419, end: 20150430
  2. LISINOPRIL. [Suspect]
     Active Substance: LISINOPRIL
     Indication: RENAL DISORDER
     Dosage: 2.5
     Route: 048
     Dates: start: 20150419, end: 20150430
  3. LISINOPRIL. [Suspect]
     Active Substance: LISINOPRIL
     Indication: PROPHYLAXIS
     Dosage: 2.5
     Route: 048
     Dates: start: 20150419, end: 20150430

REACTIONS (3)
  - Dyspnoea [None]
  - Urticaria [None]
  - Dysphagia [None]

NARRATIVE: CASE EVENT DATE: 20150429
